FAERS Safety Report 10051200 (Version 2)
Quarter: 2014Q2

REPORT INFORMATION
  Report Type: Spontaneous
  Country: US (occurrence: US)
  Receive Date: 20140401
  Receipt Date: 20140410
  Transmission Date: 20141212
  Serious: Yes (Other)
  Sender: FDA-Public Use
  Company Number: US-BAYER-2014-045557

PATIENT
  Age: 57 Year
  Sex: Female
  Weight: 66.21 kg

DRUGS (1)
  1. ESTRADIOL HEMIHYDRATE (PATCH) [Suspect]
     Indication: MENOPAUSAL SYMPTOMS
     Dosage: 1 DF, OW
     Route: 062
     Dates: start: 20131230

REACTIONS (2)
  - Postmenopausal haemorrhage [Not Recovered/Not Resolved]
  - Product adhesion issue [None]
